FAERS Safety Report 7789384-4 (Version None)
Quarter: 2011Q3

REPORT INFORMATION
  Report Type: 
  Country: None (occurrence: None)
  Receive Date: 20110930
  Receipt Date: 20110926
  Transmission Date: 20111222
  Serious: Yes (Other)
  Sender: FDA-Public Use
  Company Number: AU-ABBOTT-11P-008-0852683-00

PATIENT
  Sex: Male

DRUGS (3)
  1. COSUDEX [Concomitant]
     Indication: PRODUCT USED FOR UNKNOWN INDICATION
  2. LUCRIN DEPOT 22.5 MG [Suspect]
     Indication: PROSTATE CANCER
     Dosage: OVER PAST TWO TO THREE YEARS
  3. LEUPROLIDE ACETATE [Suspect]
     Indication: PRODUCT USED FOR UNKNOWN INDICATION
     Dates: start: 20110811

REACTIONS (14)
  - BRONCHITIS [None]
  - PAIN [None]
  - PROSTATIC SPECIFIC ANTIGEN INCREASED [None]
  - HOT FLUSH [None]
  - PROSTATE CANCER METASTATIC [None]
  - OSTEOPOROSIS [None]
  - LETHARGY [None]
  - HEADACHE [None]
  - ARTHROPATHY [None]
  - ASTHMA [None]
  - DISTURBANCE IN ATTENTION [None]
  - COUGH [None]
  - BONE PAIN [None]
  - BACK PAIN [None]
